FAERS Safety Report 9984068 (Version 1)
Quarter: 2014Q1

REPORT INFORMATION
  Report Type: Report from Study
  Country: US (occurrence: US)
  Receive Date: 20140307
  Receipt Date: 20140307
  Transmission Date: 20141002
  Serious: No
  Sender: FDA-Public Use
  Company Number: US-ABBVIE-13P-163-1182453-00

PATIENT
  Age: 70 Year
  Sex: Female
  Weight: 81.72 kg

DRUGS (5)
  1. HUMIRA [Suspect]
     Indication: PSORIASIS
     Dates: start: 200903, end: 201311
  2. DIOVAN [Concomitant]
     Indication: HYPERTENSION
  3. PREMARIN [Concomitant]
     Indication: HYSTERECTOMY
  4. IRON [Concomitant]
     Indication: BLOOD IRON DECREASED
  5. VESICARE [Concomitant]
     Indication: MICTURITION URGENCY

REACTIONS (6)
  - Nephrolithiasis [Not Recovered/Not Resolved]
  - Chromaturia [Recovered/Resolved]
  - Pubic pain [Recovered/Resolved]
  - Urinary tract infection [Recovered/Resolved]
  - Urinary tract infection [Recovered/Resolved]
  - Kidney infection [Recovered/Resolved]
